FAERS Safety Report 4587855-5 (Version None)
Quarter: 2005Q1

REPORT INFORMATION
  Report Type: 
  Country: None (occurrence: None)
  Receive Date: 20050125
  Receipt Date: 20040910
  Transmission Date: 20050727
  Serious: No
  Sender: FDA-Public Use
  Company Number: USA040977917

PATIENT
  Age: 64 Year
  Sex: Female
  Weight: 70 kg

DRUGS (5)
  1. FORTEO [Suspect]
     Indication: OSTEOPOROSIS
     Dosage: 20 UG/1 DAY
     Dates: start: 20030601
  2. HUMALOG [Suspect]
     Indication: DIABETES MELLITUS INSULIN-DEPENDENT
     Dates: start: 19990101
  3. SYNTHROID [Concomitant]
  4. REGLAN [Concomitant]
  5. NEXIUM [Concomitant]

REACTIONS (4)
  - ALOPECIA [None]
  - DRY MOUTH [None]
  - OSTEOPOROSIS [None]
  - SPINAL FRACTURE [None]
